FAERS Safety Report 7209889-4 (Version None)
Quarter: 2011Q1

REPORT INFORMATION
  Report Type: 
  Country: None (occurrence: None)
  Receive Date: 20110105
  Receipt Date: 20101229
  Transmission Date: 20110831
  Serious: Yes (Other)
  Sender: FDA-Public Use
  Company Number: NL-BIOGENIDEC-2010BI041353

PATIENT
  Age: 45 Year
  Sex: Female

DRUGS (2)
  1. VESICARE [Concomitant]
  2. TYSABRI [Suspect]
     Indication: RELAPSING-REMITTING MULTIPLE SCLEROSIS
     Route: 042
     Dates: start: 20090713, end: 20100922

REACTIONS (1)
  - LENTIGO MALIGNA STAGE UNSPECIFIED [None]
